FAERS Safety Report 10022951 (Version 1)
Quarter: 2014Q1

REPORT INFORMATION
  Report Type: Spontaneous
  Country: US (occurrence: US)
  Receive Date: 20140319
  Receipt Date: 20140319
  Transmission Date: 20141002
  Serious: No
  Sender: FDA-Public Use
  Company Number: US-SA-2014SA020730

PATIENT
  Age: 56 Year
  Sex: Female

DRUGS (2)
  1. NASACORT ALLERGY [Suspect]
     Route: 065
     Dates: start: 20140215, end: 20140217
  2. NOSTRILLA [Concomitant]

REACTIONS (3)
  - Nasal congestion [Not Recovered/Not Resolved]
  - Adverse reaction [Not Recovered/Not Resolved]
  - Drug ineffective [Unknown]
